FAERS Safety Report 6676074-4 (Version None)
Quarter: 2010Q2

REPORT INFORMATION
  Report Type: 
  Country: None (occurrence: None)
  Receive Date: 20100412
  Receipt Date: 20100402
  Transmission Date: 20101027
  Serious: Yes (Hospitalization)
  Sender: FDA-Public Use
  Company Number: FR-SOLVAY-00310002109

PATIENT
  Age: 58 Year
  Sex: Male

DRUGS (3)
  1. URSOLVAN 200 MG [Suspect]
     Indication: DRUG USE FOR UNKNOWN INDICATION
     Dosage: DAILY DOSE:  UNKNOWN
     Route: 048
     Dates: start: 20080501
  2. SOMATULINE LP 120 MG [Suspect]
     Indication: DRUG USE FOR UNKNOWN INDICATION
     Dosage: DAILY DOSE:  UNKNOWN; AS USED: 0.0357 DF, 1 DF EACH 28 DAYS; FREQUENCY: ONCE A DAY.
     Route: 042
     Dates: start: 20071201, end: 20091001
  3. CREON [Suspect]
     Indication: DRUG USE FOR UNKNOWN INDICATION
     Dosage: DAILY DOSE:  UNKNOWN
     Route: 048
     Dates: start: 20080501

REACTIONS (3)
  - ADENOMA BENIGN [None]
  - DIARRHOEA [None]
  - VITAMIN K DEFICIENCY [None]
